FAERS Safety Report 5179427-9 (Version None)
Quarter: 2006Q4

REPORT INFORMATION
  Report Type: 
  Country: None (occurrence: None)
  Receive Date: 20061219
  Receipt Date: 20061004
  Transmission Date: 20070319
  Serious: Yes (Hospitalization, Other)
  Sender: FDA-Public Use
  Company Number: US-ELI_LILLY_AND_COMPANY-US200610001116

PATIENT
  Age: 58 Year
  Sex: Male
  Weight: 82.993 kg

DRUGS (3)
  1. CALCIUM [Concomitant]
     Dosage: 500 MG, 2/D
  2. VITAMIN D [Concomitant]
  3. FORTEO [Suspect]
     Indication: OSTEOPOROSIS
     Dosage: 20 UG, DAILY (1/D)
     Dates: start: 20040801, end: 20060101

REACTIONS (9)
  - FOOT FRACTURE [None]
  - HIP FRACTURE [None]
  - ILL-DEFINED DISORDER [None]
  - LOWER LIMB FRACTURE [None]
  - PNEUMOTHORAX [None]
  - RIB FRACTURE [None]
  - ROAD TRAFFIC ACCIDENT [None]
  - SCAPULA FRACTURE [None]
  - UPPER LIMB FRACTURE [None]
